FAERS Safety Report 5972963-4 (Version None)
Quarter: 2008Q4

REPORT INFORMATION
  Report Type: 
  Country: None (occurrence: None)
  Receive Date: 20081201
  Receipt Date: 20081121
  Transmission Date: 20090506
  Serious: Yes (Hospitalization, Other)
  Sender: FDA-Public Use
  Company Number: PHHY2008JP28209

PATIENT
  Age: 8 Year
  Sex: Male

DRUGS (8)
  1. GLEEVEC [Suspect]
     Dosage: 300 MG/DAY
     Route: 048
  2. GLEEVEC [Suspect]
     Dosage: 400 MG/DAY
     Route: 048
  3. GLEEVEC [Suspect]
     Route: 048
  4. ETOPOSIDE [Concomitant]
     Dosage: UNK
     Dates: start: 20070701
  5. CYCLOPHOSPHAMIDE [Concomitant]
  6. TACROLIMUS [Concomitant]
     Indication: GRAFT VERSUS HOST DISEASE
  7. METHOTREXATE [Concomitant]
  8. DASATINIB [Concomitant]

REACTIONS (5)
  - ACUTE GRAFT VERSUS HOST DISEASE IN SKIN [None]
  - ACUTE LYMPHOCYTIC LEUKAEMIA [None]
  - CORD BLOOD TRANSPLANT THERAPY [None]
  - NAUSEA [None]
  - VOMITING [None]
